FAERS Safety Report 15022294 (Version 1)
Quarter: 2018Q2

REPORT INFORMATION
  Report Type: Spontaneous
  Country: DE (occurrence: DE)
  Receive Date: 20180618
  Receipt Date: 20180618
  Transmission Date: 20180711
  Serious: Yes (Hospitalization, Other)
  Sender: FDA-Public Use
  Company Number: DE-TEVA-2018-DE-906222

PATIENT
  Age: 42 Year
  Sex: Female

DRUGS (7)
  1. PANTOPRAZOL MYLAN DURA [Suspect]
     Active Substance: PANTOPRAZOLE SODIUM
     Indication: KNEE OPERATION
     Route: 065
  2. MCP-TROPFEN RATIOPHARM [Suspect]
     Active Substance: METOCLOPRAMIDE
     Indication: KNEE OPERATION
     Route: 048
  3. NOVAMINSULFON 1A PHARMA [Suspect]
     Active Substance: METAMIZOLE SODIUM
     Indication: KNEE OPERATION
     Route: 065
  4. BROMELAIN URSAPHARM [Suspect]
     Active Substance: BROMELAINS
     Indication: KNEE OPERATION
     Route: 065
  5. XARELTO [Suspect]
     Active Substance: RIVAROXABAN
     Indication: KNEE OPERATION
     Route: 065
  6. DICLOFENAC NOVARTIS [Suspect]
     Active Substance: DICLOFENAC
     Indication: KNEE OPERATION
     Dosage: 225 MILLIGRAM DAILY;
     Route: 065
  7. LYRICA [Suspect]
     Active Substance: PREGABALIN
     Indication: KNEE OPERATION
     Route: 065

REACTIONS (10)
  - Analgesic drug level increased [Unknown]
  - Overdose [None]
  - Discomfort [Not Recovered/Not Resolved]
  - Hepatotoxicity [None]
  - Pneumonia [Unknown]
  - Sepsis [Recovered/Resolved]
  - Pulmonary function test abnormal [Not Recovered/Not Resolved]
  - Coma [Recovered/Resolved]
  - Hepatic failure [Recovered/Resolved]
  - Poisoning [Recovered/Resolved]

NARRATIVE: CASE EVENT DATE: 2013
